FAERS Safety Report 24169883 (Version 1)
Quarter: 2024Q3

REPORT INFORMATION
  Report Type: Report from Study
  Country: US (occurrence: US)
  Receive Date: 20240803
  Receipt Date: 20240803
  Transmission Date: 20241017
  Serious: Yes (Hospitalization, Other)
  Sender: Granulation Technology, INC
  Company Number: US-GTI-000256

PATIENT
  Age: 76 Year
  Sex: Male

DRUGS (9)
  1. IBUPROFEN [Suspect]
     Active Substance: IBUPROFEN
     Indication: Scleritis
     Route: 065
  2. METHOTREXATE [Suspect]
     Active Substance: METHOTREXATE
     Indication: Scleritis
     Route: 065
  3. RITUXIMAB [Suspect]
     Active Substance: RITUXIMAB
     Indication: Scleritis
     Route: 065
  4. VORICONAZOLE [Suspect]
     Active Substance: VORICONAZOLE
     Indication: Scleritis
     Route: 065
  5. VORICONAZOLE [Suspect]
     Active Substance: VORICONAZOLE
     Indication: Scleritis
     Route: 048
  6. AMPHOTERICIN B [Suspect]
     Active Substance: AMPHOTERICIN B
     Indication: Scleritis
     Route: 061
  7. AMIKACIN [Suspect]
     Active Substance: AMIKACIN
     Indication: Scleritis
     Route: 065
  8. FLUCONAZOLE [Suspect]
     Active Substance: FLUCONAZOLE
     Indication: Scleritis
     Route: 048
  9. PREDNISONE [Suspect]
     Active Substance: PREDNISONE
     Indication: Scleritis
     Route: 048

REACTIONS (7)
  - Aspergillus infection [Unknown]
  - Scleritis [Unknown]
  - Cystoid macular oedema [Recovered/Resolved]
  - Endophthalmitis [Unknown]
  - Drug resistance [Unknown]
  - Disease progression [Unknown]
  - Vitritis [Unknown]
